FAERS Safety Report 9806178 (Version 1)
Quarter: 2014Q1

REPORT INFORMATION
  Report Type: Spontaneous
  Country: US (occurrence: US)
  Receive Date: 20140109
  Receipt Date: 20140109
  Transmission Date: 20141002
  Serious: Yes (Other)
  Sender: FDA-Public Use
  Company Number: US-PFIZER INC-2014002067

PATIENT
  Sex: Female

DRUGS (1)
  1. DEPO-SUBQ PROVERA 104 [Suspect]
     Indication: CONTRACEPTION
     Dosage: UNK
     Route: 058
     Dates: start: 201307

REACTIONS (7)
  - Drug ineffective [Unknown]
  - Unintended pregnancy [Unknown]
  - Haemorrhage in pregnancy [Unknown]
  - Amenorrhoea [Unknown]
  - Feeling abnormal [Unknown]
  - Malaise [Unknown]
  - Cervical discharge [Unknown]
